FAERS Safety Report 10743919 (Version 1)
Quarter: 2015Q1

REPORT INFORMATION
  Report Type: Spontaneous
  Country: US (occurrence: US)
  Receive Date: 20150128
  Receipt Date: 20150128
  Transmission Date: 20150721
  Serious: Yes (Other)
  Sender: FDA-Public Use
  Company Number: US-BIOGENIDEC-2015BI008924

PATIENT
  Age: 59 Year
  Sex: Male

DRUGS (10)
  1. CENTRUM SILVER [Concomitant]
     Active Substance: VITAMINS
  2. NIASPAN [Concomitant]
     Active Substance: NIACIN
  3. GABAPENTIN. [Concomitant]
     Active Substance: GABAPENTIN
  4. DIOVAN HCT [Concomitant]
     Active Substance: HYDROCHLOROTHIAZIDE\VALSARTAN
  5. ARTHROTEC [Concomitant]
     Active Substance: DICLOFENAC SODIUM\MISOPROSTOL
  6. AVONEX [Suspect]
     Active Substance: INTERFERON BETA-1A
     Indication: MULTIPLE SCLEROSIS
     Route: 030
     Dates: start: 20130205
  7. VITAMIN D [Concomitant]
     Active Substance: CHOLECALCIFEROL
  8. SIMVASTATIN. [Concomitant]
     Active Substance: SIMVASTATIN
  9. NEXIUM [Concomitant]
     Active Substance: ESOMEPRAZOLE MAGNESIUM
  10. FISH OIL [Concomitant]
     Active Substance: FISH OIL

REACTIONS (4)
  - Painful respiration [Unknown]
  - Pyrexia [Unknown]
  - Surgery [Recovered/Resolved]
  - Chills [Unknown]

NARRATIVE: CASE EVENT DATE: 201412
